FAERS Safety Report 10763766 (Version 1)
Quarter: 2015Q1

REPORT INFORMATION
  Report Type: Spontaneous
  Country: FR (occurrence: FR)
  Receive Date: 20150204
  Receipt Date: 20150204
  Transmission Date: 20150721
  Serious: Yes (Death)
  Sender: FDA-Public Use
  Company Number: FR-BAXTER-2015BAX004648

PATIENT
  Age: 64 Year
  Sex: Male

DRUGS (28)
  1. ELDISINE [Suspect]
     Active Substance: VINDESINE SULFATE
     Indication: NON-HODGKIN^S LYMPHOMA STAGE IV
     Route: 042
     Dates: start: 200807, end: 200811
  2. ARACYTINE [Suspect]
     Active Substance: CYTARABINE
     Indication: NON-HODGKIN^S LYMPHOMA STAGE IV
     Dosage: 404 MG; DAYS 2, 3, 4, 5
     Route: 042
     Dates: start: 20090226, end: 20090226
  3. DIFFU K [Concomitant]
     Active Substance: POTASSIUM CHLORIDE
     Indication: PRODUCT USED FOR UNKNOWN INDICATION
     Route: 065
  4. ENDOXAN 1000 MG, POUDRE POUR SOLUTION INJECTABLE [Suspect]
     Active Substance: CYCLOPHOSPHAMIDE
     Dosage: 6318 MG
     Route: 042
     Dates: start: 200901, end: 200901
  5. BLEOMYCINE BELLON [Suspect]
     Active Substance: BLEOMYCIN SULFATE
     Indication: NON-HODGKIN^S LYMPHOMA STAGE IV
     Route: 042
     Dates: start: 200807, end: 200811
  6. ARACYTINE [Suspect]
     Active Substance: CYTARABINE
     Dosage: 404 MG; DAYS 2, 3, 4, 5
     Route: 042
     Dates: start: 20090227, end: 20090227
  7. ALKERAN [Suspect]
     Active Substance: MELPHALAN
     Indication: NON-HODGKIN^S LYMPHOMA STAGE IV
     Dosage: 285 MG; DAY 6
     Route: 042
     Dates: start: 20090302, end: 20090302
  8. BICNU [Suspect]
     Active Substance: CARMUSTINE
     Indication: NON-HODGKIN^S LYMPHOMA STAGE IV
     Dosage: 610 MG
     Route: 042
     Dates: start: 20090225, end: 20090225
  9. ETOPOSIDE MYLAN [Suspect]
     Active Substance: ETOPOSIDE
     Dosage: 404 MG; DAYS 2, 3, 4, 5
     Route: 042
     Dates: start: 20090301, end: 20090301
  10. METFORMIN [Concomitant]
     Active Substance: METFORMIN HYDROCHLORIDE
     Indication: PRODUCT USED FOR UNKNOWN INDICATION
     Route: 065
  11. TRAMADOL [Concomitant]
     Active Substance: TRAMADOL
     Indication: PRODUCT USED FOR UNKNOWN INDICATION
     Route: 065
  12. ENDOXAN 1000 MG, POUDRE POUR SOLUTION INJECTABLE [Suspect]
     Active Substance: CYCLOPHOSPHAMIDE
     Indication: NON-HODGKIN^S LYMPHOMA STAGE IV
     Route: 042
     Dates: start: 200807
  13. ADRIBLASTINE [Suspect]
     Active Substance: DOXORUBICIN
     Indication: NON-HODGKIN^S LYMPHOMA STAGE IV
     Route: 042
     Dates: start: 200807, end: 200811
  14. ETOPOSIDE MYLAN [Suspect]
     Active Substance: ETOPOSIDE
     Dosage: 404 MG; DAYS 2, 3, 4, 5
     Route: 042
     Dates: start: 20090227, end: 20090227
  15. ISOPHANE INSULIN [Concomitant]
     Active Substance: INSULIN NOS
     Indication: PRODUCT USED FOR UNKNOWN INDICATION
     Route: 065
  16. NEURONTIN [Concomitant]
     Active Substance: GABAPENTIN
     Indication: PRODUCT USED FOR UNKNOWN INDICATION
     Route: 065
  17. SOLUPRED [Concomitant]
     Active Substance: PREDNISOLONE
     Indication: PRODUCT USED FOR UNKNOWN INDICATION
     Route: 065
  18. ONCOVIN [Suspect]
     Active Substance: VINCRISTINE SULFATE
     Indication: NON-HODGKIN^S LYMPHOMA STAGE IV
     Route: 042
     Dates: start: 200807, end: 200811
  19. ETOPOSIDE MYLAN [Suspect]
     Active Substance: ETOPOSIDE
     Dosage: 404 MG; DAYS 2, 3, 4, 5
     Route: 042
     Dates: start: 20090228, end: 20090228
  20. INEXIUM [Concomitant]
     Active Substance: ESOMEPRAZOLE
     Indication: PRODUCT USED FOR UNKNOWN INDICATION
     Route: 065
  21. ETOPOSIDE MYLAN [Suspect]
     Active Substance: ETOPOSIDE
     Indication: NON-HODGKIN^S LYMPHOMA STAGE IV
     Dosage: 404 MG; DAYS 2, 3, 4, 5
     Route: 042
     Dates: start: 20090226, end: 20090226
  22. ARACYTINE [Suspect]
     Active Substance: CYTARABINE
     Dosage: 404 MG; DAYS 2, 3, 4, 5
     Route: 042
     Dates: start: 20090301, end: 20090301
  23. SKENAN [Concomitant]
     Active Substance: MORPHINE SULFATE
     Indication: PRODUCT USED FOR UNKNOWN INDICATION
     Route: 065
  24. MABTHERA [Suspect]
     Active Substance: RITUXIMAB
     Indication: NON-HODGKIN^S LYMPHOMA STAGE IV
     Route: 042
     Dates: start: 200807, end: 200811
  25. METHOTREXATE [Suspect]
     Active Substance: METHOTREXATE
     Indication: NON-HODGKIN^S LYMPHOMA STAGE IV
     Route: 042
     Dates: start: 200811, end: 200812
  26. ARACYTINE [Suspect]
     Active Substance: CYTARABINE
     Dosage: 404 MG; DAYS 2, 3, 4, 5
     Route: 042
     Dates: start: 20090228, end: 20090228
  27. BISOCE [Concomitant]
     Active Substance: BISOPROLOL
     Indication: PRODUCT USED FOR UNKNOWN INDICATION
     Route: 065
  28. LASILIX [Concomitant]
     Active Substance: FUROSEMIDE
     Indication: PRODUCT USED FOR UNKNOWN INDICATION
     Route: 065

REACTIONS (1)
  - Myelodysplastic syndrome [Fatal]

NARRATIVE: CASE EVENT DATE: 201210
